FAERS Safety Report 7655390-3 (Version None)
Quarter: 2011Q3

REPORT INFORMATION
  Report Type: 
  Country: None (occurrence: None)
  Receive Date: 20110804
  Receipt Date: 20110729
  Transmission Date: 20111222
  Serious: Yes (Other)
  Sender: FDA-Public Use
  Company Number: US-BAYER-2011-067105

PATIENT
  Sex: Female

DRUGS (1)
  1. MIRENA [Suspect]
     Dosage: 20 ?G, CONT
     Route: 015
     Dates: start: 20080101

REACTIONS (7)
  - ABDOMINAL PAIN UPPER [None]
  - VAGINAL DISCHARGE [None]
  - ASTHENIA [None]
  - PENILE PAIN [None]
  - SMEAR CERVIX ABNORMAL [None]
  - NAUSEA [None]
  - MIGRAINE [None]
